FAERS Safety Report 17675479 (Version 1)
Quarter: 2020Q2

REPORT INFORMATION
  Report Type: Spontaneous
  Country: US (occurrence: US)
  Receive Date: 20200415
  Receipt Date: 20200415
  Transmission Date: 20200714
  Serious: Yes (Other)
  Sender: FDA-Public Use
  Company Number: None

PATIENT
  Age: 29 Year
  Sex: Female
  Weight: 67.59 kg

DRUGS (1)
  1. NEXPLANON [Suspect]
     Active Substance: ETONOGESTREL
     Indication: CONTRACEPTION
     Dosage: OTHER FREQUENCY: ONCE EVERY 3 YEARS
     Route: 062
     Dates: start: 20170301

REACTIONS (3)
  - Contraceptive implant [None]
  - Neuropathy peripheral [None]
  - Implantation complication [None]

NARRATIVE: CASE EVENT DATE: 20200414
